FAERS Safety Report 6865065-6 (Version None)
Quarter: 2010Q3

REPORT INFORMATION
  Report Type: 
  Country: None (occurrence: None)
  Receive Date: 20100721
  Receipt Date: 20080414
  Transmission Date: 20110219
  Serious: No
  Sender: FDA-Public Use
  Company Number: US-PFIZER INC-2008033957

PATIENT
  Sex: Female
  Weight: 65.8 kg

DRUGS (2)
  1. CHANTIX [Suspect]
     Indication: SMOKING CESSATION THERAPY
     Dates: start: 20070901
  2. PROZAC [Concomitant]
     Indication: DEPRESSION

REACTIONS (3)
  - ABDOMINAL DISTENSION [None]
  - ABNORMAL DREAMS [None]
  - WEIGHT INCREASED [None]
